FAERS Safety Report 5133894-5 (Version None)
Quarter: 2006Q4

REPORT INFORMATION
  Report Type: 
  Country: None (occurrence: None)
  Receive Date: 20061023
  Receipt Date: 20061023
  Transmission Date: 20070319
  Serious: No
  Sender: FDA-Public Use
  Company Number: None

PATIENT
  Age: 20 Year
  Sex: Male
  Weight: 91.6266 kg

DRUGS (3)
  1. IBUPROFEN [Suspect]
     Indication: HEADACHE
     Dosage: 200MG 2 PO
     Route: 048
  2. IBUPROFEN [Suspect]
     Indication: INFLAMMATION
     Dosage: 200MG 2 PO
     Route: 048
  3. IBUPROFEN [Suspect]
     Indication: SINUS DISORDER
     Dosage: 200MG 2 PO
     Route: 048

REACTIONS (11)
  - ABDOMINAL PAIN UPPER [None]
  - AGGRESSION [None]
  - ANOREXIA [None]
  - CONFUSIONAL STATE [None]
  - FATIGUE [None]
  - HEADACHE [None]
  - HEART RATE INCREASED [None]
  - INFLUENZA LIKE ILLNESS [None]
  - MOOD SWINGS [None]
  - PALLOR [None]
  - STOMACH DISCOMFORT [None]
